FAERS Safety Report 13423117 (Version 1)
Quarter: 2017Q2

REPORT INFORMATION
  Report Type: Spontaneous
  Country: DE (occurrence: DE)
  Receive Date: 20170410
  Receipt Date: 20170410
  Transmission Date: 20170830
  Serious: Yes (Other)
  Sender: FDA-Public Use
  Company Number: DE-ROCHE-1917550

PATIENT
  Sex: Female

DRUGS (4)
  1. TAXANE NOS [Suspect]
     Active Substance: UNSPECIFIED INGREDIENT
     Indication: CERVIX CANCER METASTATIC
     Route: 065
  2. AVASTIN [Suspect]
     Active Substance: BEVACIZUMAB
     Indication: CERVIX CANCER METASTATIC
     Route: 065
  3. CARBOPLATIN. [Suspect]
     Active Substance: CARBOPLATIN
     Indication: CERVIX CANCER METASTATIC
     Route: 065
  4. CISPLATIN. [Suspect]
     Active Substance: CISPLATIN
     Indication: CERVIX CANCER METASTATIC
     Route: 065

REACTIONS (3)
  - Polyneuropathy [Unknown]
  - Nerve injury [Unknown]
  - Off label use [Unknown]
